FAERS Safety Report 8852654 (Version 1)
Quarter: 2012Q4

REPORT INFORMATION
  Report Type: 
  Country: US (occurrence: US)
  Receive Date: 20121022
  Receipt Date: 20121022
  Transmission Date: 20130627
  Serious: No
  Sender: FDA-Public Use
  Company Number: US-ASTRAZENECA-2012SE77206

PATIENT
  Age: 80 Year
  Sex: Female
  Weight: 61.7 kg

DRUGS (4)
  1. NEXIUM [Suspect]
     Indication: HIATUS HERNIA
     Route: 048
  2. DIOVAN [Concomitant]
     Indication: HYPERTENSION
  3. HYDROCHLOROTHIAZIDE [Concomitant]
     Indication: DIURETIC THERAPY
  4. VERAPAMIL [Concomitant]
     Indication: HYPERTENSION

REACTIONS (4)
  - Arthritis [Unknown]
  - Hypertension [Unknown]
  - Drug dose omission [Unknown]
  - Off label use [Unknown]
